FAERS Safety Report 4310287-1 (Version None)
Quarter: 2004Q1

REPORT INFORMATION
  Report Type: 
  Country: None (occurrence: None)
  Receive Date: 20040303
  Receipt Date: 20040109
  Transmission Date: 20041129
  Serious: Yes (Hospitalization)
  Sender: FDA-Public Use
  Company Number: WAES 0401USA00877

PATIENT
  Age: 13 Year
  Sex: Female
  Weight: 43 kg

DRUGS (7)
  1. [THERAPY UNSPECIFIED] [Concomitant]
     Indication: LYMPHOMA
  2. ASPARAGINASE (AS DRUG) [Concomitant]
     Indication: LYMPHOMA
     Dates: start: 20030104
  3. DAUNORUBICIN HYDROCHLORIDE [Concomitant]
     Indication: LYMPHOMA
     Dates: start: 20030104
  4. DECADRON [Suspect]
     Indication: LYMPHOMA
     Route: 048
     Dates: start: 20021221
  5. LEUCOVORIN CALCIUM [Concomitant]
     Indication: LYMPHOMA
  6. METHOTREXATE [Concomitant]
     Indication: LYMPHOMA
  7. VINCRISTINE SULFATE [Concomitant]
     Indication: LYMPHOMA
     Dates: start: 20030104

REACTIONS (6)
  - DIABETES MELLITUS NON-INSULIN-DEPENDENT [None]
  - DYSPNOEA [None]
  - ERYTHEMA OF EYELID [None]
  - EYELID OEDEMA [None]
  - MEDIASTINUM NEOPLASM [None]
  - PLEURAL EFFUSION [None]
